FAERS Safety Report 7213749-2 (Version None)
Quarter: 2011Q1

REPORT INFORMATION
  Report Type: 
  Country: None (occurrence: None)
  Receive Date: 20110106
  Receipt Date: 20101229
  Transmission Date: 20110831
  Serious: Yes (Hospitalization)
  Sender: FDA-Public Use
  Company Number: SI-BAYER-2010-009228

PATIENT
  Sex: Female
  Weight: 80 kg

DRUGS (1)
  1. ULTRAVIST 150 [Suspect]
     Dosage: 120 UNK, UNK
     Route: 042
     Dates: start: 20101116, end: 20101116

REACTIONS (4)
  - CONJUNCTIVAL OEDEMA [None]
  - NAUSEA [None]
  - TACHYCARDIA [None]
  - DYSPNOEA [None]
